FAERS Safety Report 20437438 (Version 1)
Quarter: 2022Q1

REPORT INFORMATION
  Report Type: Other
  Country: US (occurrence: US)
  Receive Date: 20220207
  Receipt Date: 20220207
  Transmission Date: 20220424
  Serious: Yes (Hospitalization, Other)
  Sender: FDA-Public Use
  Company Number: US-HLS-202200221

PATIENT
  Age: 40 Decade
  Sex: Female

DRUGS (9)
  1. CLOZAPINE [Suspect]
     Active Substance: CLOZAPINE
     Route: 065
  2. BENZTROPINE [Concomitant]
     Active Substance: BENZTROPINE
     Route: 065
  3. CLONAZEPAM [Concomitant]
     Active Substance: CLONAZEPAM
     Dosage: THREE TIMES A DAY
     Route: 065
  4. VALPROIC ACID [Concomitant]
     Active Substance: VALPROIC ACID
     Route: 065
  5. FLUOXETINE [Concomitant]
     Active Substance: FLUOXETINE HYDROCHLORIDE
     Route: 065
  6. HALOPERIDOL [Concomitant]
     Active Substance: HALOPERIDOL
     Route: 065
  7. PROPRANOLOL [Concomitant]
     Active Substance: PROPRANOLOL HYDROCHLORIDE
     Route: 065
  8. METFORMIN [Concomitant]
     Active Substance: METFORMIN HYDROCHLORIDE
     Route: 065
  9. VARENICLINE [Suspect]
     Active Substance: VARENICLINE
     Route: 065

REACTIONS (7)
  - Ankle fracture [Recovered/Resolved]
  - Glycosylated haemoglobin increased [Recovered/Resolved]
  - Fall [Recovered/Resolved]
  - Low density lipoprotein increased [Recovered/Resolved]
  - Diabetes mellitus [Unknown]
  - Smoking cessation therapy [Recovered/Resolved]
  - Blood cholesterol increased [Unknown]
